FAERS Safety Report 7352700-1 (Version None)
Quarter: 2011Q1

REPORT INFORMATION
  Report Type: 
  Country: None (occurrence: None)
  Receive Date: 20110310
  Receipt Date: 20110310
  Transmission Date: 20110831
  Serious: Yes (Hospitalization)
  Sender: FDA-Public Use
  Company Number: None

PATIENT
  Age: 36 Year
  Sex: Male
  Weight: 95.2554 kg

DRUGS (1)
  1. STRATTERA [Suspect]
     Indication: ATTENTION DEFICIT/HYPERACTIVITY DISORDER
     Dosage: 120-180 MG ONCE DAILY PO
     Route: 048
     Dates: start: 20080601, end: 20110110

REACTIONS (2)
  - STRESS [None]
  - IRRITABLE BOWEL SYNDROME [None]
